FAERS Safety Report 8607176 (Version 2)
Quarter: 2013Q2

REPORT INFORMATION
  Report Type: Spontaneous
  Country: US (occurrence: US)
  Receive Date: 20120611
  Receipt Date: 20130617
  Transmission Date: 20140414
  Serious: Yes (Hospitalization, Disabling, Other)
  Sender: FDA-Public Use
  Company Number: US-ASTRAZENECA-2012SE34917

PATIENT
  Age: 17970 Day
  Sex: Male
  Weight: 141.5 kg

DRUGS (47)
  1. NEXIUM [Suspect]
     Indication: GASTROOESOPHAGEAL REFLUX DISEASE
     Route: 048
  2. NEXIUM [Suspect]
     Indication: DYSPEPSIA
     Route: 048
  3. NEXIUM [Suspect]
     Indication: GASTROOESOPHAGEAL REFLUX DISEASE
     Dosage: ONCE PER DAY
     Route: 048
  4. NEXIUM [Suspect]
     Indication: DYSPEPSIA
     Dosage: ONCE PER DAY
     Route: 048
  5. NEXIUM [Suspect]
     Indication: GASTROOESOPHAGEAL REFLUX DISEASE
     Route: 048
     Dates: start: 20090703
  6. NEXIUM [Suspect]
     Indication: DYSPEPSIA
     Route: 048
     Dates: start: 20090703
  7. ATENOLOL [Concomitant]
     Indication: BLOOD PRESSURE ABNORMAL
     Route: 048
     Dates: start: 2003
  8. ATENOLOL [Concomitant]
     Indication: BLOOD PRESSURE ABNORMAL
     Route: 048
  9. ZANTAC [Concomitant]
     Route: 048
  10. TAGAMET [Concomitant]
  11. HYDROCODONE [Concomitant]
     Dates: start: 2004
  12. CLONIDINE [Concomitant]
     Dates: start: 20070904
  13. LORATADINE [Concomitant]
     Dates: start: 20070626
  14. SEROQUEL [Concomitant]
     Route: 048
     Dates: start: 20070626
  15. SEROQUEL [Concomitant]
     Route: 048
  16. SEROQUEL [Concomitant]
     Route: 048
     Dates: start: 20070912
  17. IBUPROFEN [Concomitant]
     Route: 048
     Dates: start: 20070806
  18. LISINOPRIL [Concomitant]
     Dates: start: 20080107
  19. OMEPRAZOLE [Concomitant]
     Dates: start: 20080129
  20. PREVACID [Concomitant]
     Dates: start: 20080408
  21. ZYRTEC [Concomitant]
     Indication: MULTIPLE ALLERGIES
     Route: 048
     Dates: start: 20090912
  22. NAPROXEN [Concomitant]
     Dates: start: 20080504
  23. LISINOP/ HCTZ [Concomitant]
     Dosage: 10/ 12.5, DAILY
     Route: 048
     Dates: start: 20080925
  24. TRAMADOL HCL [Concomitant]
     Dates: start: 20090216
  25. HYDROCHLORO [Concomitant]
     Dates: start: 20091001
  26. METOPROLOL [Concomitant]
     Dates: start: 20091001
  27. LEVITRA [Concomitant]
     Dates: start: 20090928
  28. ACTOS [Concomitant]
     Dates: start: 20080604
  29. RANITIDINE [Concomitant]
     Dates: start: 20010314
  30. METOCLOPRAM [Concomitant]
     Dates: start: 20010314
  31. CLONAZEPAM [Concomitant]
     Dates: start: 20051026
  32. PAROXETINE [Concomitant]
     Dates: start: 20060602
  33. DEPAKOTE ER [Concomitant]
     Dates: start: 20060602
  34. MELOXICAM [Concomitant]
     Route: 048
  35. GLIPIZIDE [Concomitant]
  36. LAMOTRIGINE [Concomitant]
     Route: 048
  37. GABAPENTIN [Concomitant]
     Route: 048
  38. CIALIS [Concomitant]
     Route: 048
  39. PRAVASTATIN [Concomitant]
     Route: 048
  40. VIAGRA [Concomitant]
     Route: 048
  41. VIAGRA [Concomitant]
     Route: 048
  42. CYMBALTA [Concomitant]
     Route: 048
  43. CELEBREX [Concomitant]
  44. FLEXERIL [Concomitant]
     Indication: PAIN
     Route: 048
  45. NORCO [Concomitant]
     Indication: PAIN
  46. VICODIN [Concomitant]
  47. MICARDIS [Concomitant]
     Route: 048

REACTIONS (16)
  - Upper limb fracture [Unknown]
  - Cervical vertebral fracture [Unknown]
  - Major depression [Unknown]
  - Osteoporosis [Unknown]
  - Intervertebral disc degeneration [Unknown]
  - Exostosis [Unknown]
  - Pain [Unknown]
  - Bone pain [Unknown]
  - Diabetes mellitus inadequate control [Unknown]
  - Essential hypertension [Unknown]
  - Neck pain [Unknown]
  - Spinal column stenosis [Unknown]
  - Spinal osteoarthritis [Unknown]
  - Abdominal discomfort [Unknown]
  - Arthralgia [Unknown]
  - Depression [Unknown]
